FAERS Safety Report 14823928 (Version 1)
Quarter: 2018Q2

REPORT INFORMATION
  Report Type: Other
  Country: IT (occurrence: IT)
  Receive Date: 20180428
  Receipt Date: 20180428
  Transmission Date: 20180711
  Serious: Yes (Hospitalization)
  Sender: FDA-Public Use
  Company Number: IT-DEXPHARM-20180261

PATIENT
  Age: 3 Year
  Sex: Female
  Weight: 14 kg

DRUGS (1)
  1. CORSODYL 200 MG/100 ML SOLUZIONE PER MUCOSA ORALE [Suspect]
     Active Substance: CHLORHEXIDINE GLUCONATE
     Dosage: IN TOTAL
     Route: 048
     Dates: start: 20180218, end: 20180218

REACTIONS (2)
  - Hypoglycaemia [Recovered/Resolved]
  - Medication error [Recovered/Resolved]

NARRATIVE: CASE EVENT DATE: 20180218
